FAERS Safety Report 26068426 (Version 1)
Quarter: 2025Q4

REPORT INFORMATION
  Report Type: Spontaneous
  Country: JP (occurrence: JP)
  Receive Date: 20251120
  Receipt Date: 20251120
  Transmission Date: 20260117
  Serious: Yes (Other)
  Sender: MERCK SHARP & DOHME LLC
  Company Number: JP-009507513-2350565

PATIENT
  Age: 8 Decade
  Sex: Male

DRUGS (9)
  1. PEMBROLIZUMAB [Suspect]
     Active Substance: PEMBROLIZUMAB
     Indication: Clear cell renal cell carcinoma
  2. PEMBROLIZUMAB [Suspect]
     Active Substance: PEMBROLIZUMAB
     Indication: Clear cell renal cell carcinoma
     Dosage: POSTOPERATIVE COURSE
  3. LENVATINIB [Suspect]
     Active Substance: LENVATINIB
     Indication: Clear cell renal cell carcinoma
  4. LENVATINIB [Suspect]
     Active Substance: LENVATINIB
     Indication: Clear cell renal cell carcinoma
     Dosage: REDUCED TO 14 MG (AT COURSE 2)
  5. LENVATINIB [Suspect]
     Active Substance: LENVATINIB
     Indication: Clear cell renal cell carcinoma
     Dosage: RESTARTED AT 10 MG (AT COURSE 4)
  6. LENVATINIB [Suspect]
     Active Substance: LENVATINIB
     Indication: Clear cell renal cell carcinoma
     Dosage: STARTED 10 MG ON ALTERNATE DAYS, POSTOPERATIVE COURSE
  7. ASPIRIN [Concomitant]
     Active Substance: ASPIRIN
  8. AMLODIPINE [Concomitant]
     Active Substance: AMLODIPINE BESYLATE
  9. SILODOSIN [Concomitant]
     Active Substance: SILODOSIN

REACTIONS (9)
  - Urinary retention [Unknown]
  - Hypothyroidism [Unknown]
  - Acute kidney injury [Unknown]
  - Malignant neoplasm progression [Unknown]
  - Hypertension [Unknown]
  - Malaise [Unknown]
  - Decreased appetite [Unknown]
  - Proteinuria [Unknown]
  - Nephrectomy [Unknown]
